FAERS Safety Report 5289760-8 (Version None)
Quarter: 2007Q2

REPORT INFORMATION
  Report Type: 
  Country: None (occurrence: None)
  Receive Date: 20070406
  Receipt Date: 20070323
  Transmission Date: 20071010
  Serious: Yes (Other)
  Sender: FDA-Public Use
  Company Number: US-JNJFOC-20070305722

PATIENT
  Age: 69 Year
  Sex: Female

DRUGS (6)
  1. REMICADE [Suspect]
     Indication: UVEITIS
     Route: 042
  2. REMICADE [Suspect]
     Indication: IRITIS
     Dosage: Q8WKS
     Route: 042
  3. REMICADE [Suspect]
     Indication: RHEUMATOID ARTHRITIS
     Dosage: Q8WKS
     Route: 042
  4. FOSAMAX [Concomitant]
  5. LORTAB [Concomitant]
  6. PREDNISONE TAB [Concomitant]

REACTIONS (1)
  - LYMPHOMA [None]
